FAERS Safety Report 7079791-X (Version None)
Quarter: 2010Q4

REPORT INFORMATION
  Report Type: 
  Country: None (occurrence: None)
  Receive Date: 20101102
  Receipt Date: 20101021
  Transmission Date: 20110411
  Serious: Yes (Other)
  Sender: FDA-Public Use
  Company Number: US-PFIZER INC-2010134877

PATIENT
  Age: 77 Year
  Sex: Female
  Weight: 70.295 kg

DRUGS (1)
  1. ZOLOFT [Suspect]
     Indication: DEPRESSION
     Dosage: UNK
     Dates: start: 20100601, end: 20100901

REACTIONS (5)
  - MOBILITY DECREASED [None]
  - MUSCLE TWITCHING [None]
  - NEOPLASM MALIGNANT [None]
  - PRURITUS [None]
  - SENSORY DISTURBANCE [None]
